FAERS Safety Report 25748209 (Version 2)
Quarter: 2025Q4

REPORT INFORMATION
  Report Type: Spontaneous
  Country: US (occurrence: None)
  Receive Date: 20250902
  Receipt Date: 20251203
  Transmission Date: 20260119
  Serious: No
  Sender: APOTEX
  Company Number: US-APOTEX-2025AP011785

PATIENT
  Sex: Male

DRUGS (3)
  1. AZELASTINE HYDROCHLORIDE\FLUTICASONE PROPIONATE [Suspect]
     Active Substance: AZELASTINE HYDROCHLORIDE\FLUTICASONE PROPIONATE
     Indication: Multiple allergies
     Dosage: 4 DOSAGE FORM, Q.AM
     Dates: start: 20250721
  2. AZELASTINE HYDROCHLORIDE\FLUTICASONE PROPIONATE [Suspect]
     Active Substance: AZELASTINE HYDROCHLORIDE\FLUTICASONE PROPIONATE
     Indication: Nasal congestion
     Dosage: 4 DOSAGE FORM, Q.H.S.
     Dates: start: 20250721
  3. AZELASTINE HYDROCHLORIDE\FLUTICASONE PROPIONATE [Suspect]
     Active Substance: AZELASTINE HYDROCHLORIDE\FLUTICASONE PROPIONATE
     Indication: Upper-airway cough syndrome

REACTIONS (10)
  - Asthma [Recovered/Resolved]
  - Sinus pain [Recovered/Resolved]
  - Upper-airway cough syndrome [Recovered/Resolved]
  - Condition aggravated [Recovered/Resolved]
  - Product dose omission issue [Unknown]
  - Device issue [Unknown]
  - Product delivery mechanism issue [Unknown]
  - Wrong technique in product usage process [Unknown]
  - Hypersensitivity [Recovered/Resolved]
  - Dyspnoea [Recovered/Resolved]

NARRATIVE: CASE EVENT DATE: 20250101
